FAERS Safety Report 20431647 (Version 3)
Quarter: 2022Q1

REPORT INFORMATION
  Report Type: Report from Study
  Country: FR (occurrence: FR)
  Receive Date: 20220204
  Receipt Date: 20220225
  Transmission Date: 20220424
  Serious: Yes (Death, Life-Threatening, Hospitalization, Other)
  Sender: FDA-Public Use
  Company Number: FR-GLAXOSMITHKLINE-FR2020EME179508

PATIENT
  Age: 60 Year
  Sex: Female
  Weight: 59 kg

DRUGS (3)
  1. BELANTAMAB MAFODOTIN [Suspect]
     Active Substance: BELANTAMAB MAFODOTIN
     Indication: Plasma cell myeloma
     Dosage: UNK
     Dates: start: 20200723
  2. BELANTAMAB MAFODOTIN [Suspect]
     Active Substance: BELANTAMAB MAFODOTIN
     Dosage: 2.5 MG/KG
     Dates: start: 20200728
  3. BELANTAMAB MAFODOTIN [Suspect]
     Active Substance: BELANTAMAB MAFODOTIN
     Dosage: 1.9 MG/KG
     Dates: start: 20200811

REACTIONS (12)
  - General physical health deterioration [Fatal]
  - Respiratory arrest [Fatal]
  - Cardiac failure [Fatal]
  - Sepsis [Fatal]
  - Haemorrhage [Fatal]
  - Epistaxis [Fatal]
  - Hyperviscosity syndrome [Fatal]
  - Thrombocytopenia [Unknown]
  - Thrombocytopenia [Unknown]
  - Disease progression [Unknown]
  - Lymphadenopathy [Unknown]
  - Treatment failure [Unknown]

NARRATIVE: CASE EVENT DATE: 20200730
